FAERS Safety Report 5221682-0 (Version None)
Quarter: 2007Q1

REPORT INFORMATION
  Report Type: 
  Country: None (occurrence: None)
  Receive Date: 20070126
  Receipt Date: 20070126
  Transmission Date: 20070707
  Serious: Yes (Other)
  Sender: FDA-Public Use
  Company Number: None

PATIENT
  Age: 47 Year
  Sex: Male
  Weight: 63.5036 kg

DRUGS (2)
  1. LEVAQUIN [Suspect]
     Indication: CYST
     Dosage: ONCE DAILY PO
     Route: 048
     Dates: start: 20060401, end: 20060414
  2. LEVAQUIN [Suspect]
     Indication: INFECTION
     Dosage: ONCE DAILY PO
     Route: 048
     Dates: start: 20060401, end: 20060414

REACTIONS (1)
  - DRUG HYPERSENSITIVITY [None]
